FAERS Safety Report 5003819-1 (Version None)
Quarter: 2006Q2

REPORT INFORMATION
  Report Type: 
  Country: None (occurrence: None)
  Receive Date: 20060515
  Receipt Date: 20060502
  Transmission Date: 20061013
  Serious: Yes (Hospitalization)
  Sender: FDA-Public Use
  Company Number: 2006025400

PATIENT
  Age: 32 Year
  Sex: Male

DRUGS (10)
  1. DOXORUBICIN HYDROCHLORIDE [Suspect]
     Indication: ACUTE LYMPHOCYTIC LEUKAEMIA
     Dosage: (25 MG/M*2, DAY1, DAY8 + DAY15), INTRAVENOUS
     Route: 042
     Dates: start: 20051027, end: 20051114
  2. ETOPOSIDE [Suspect]
     Indication: ACUTE LYMPHOCYTIC LEUKAEMIA
     Dosage: SEE IMAGE, INTRAVENOUS
     Route: 042
     Dates: start: 20051129, end: 20051129
  3. ETOPOSIDE [Suspect]
     Indication: ACUTE LYMPHOCYTIC LEUKAEMIA
     Dosage: SEE IMAGE, INTRAVENOUS
     Route: 042
     Dates: start: 20051224, end: 20051225
  4. CYTARABINE [Suspect]
     Indication: ACUTE LYMPHOCYTIC LEUKAEMIA
     Dosage: (30 MG/M**2, DAY2),  INTRAVENOUS
     Route: 042
     Dates: start: 20051129, end: 20051129
  5. ELSPAR [Suspect]
     Indication: ACUTE LYMPHOCYTIC LEUKAEMIA
     Dosage: 6000 IU/L (6 TIMES BETWEEN DAY3 + DAY 15), INTRAVENOUS
     Route: 042
     Dates: start: 20051027, end: 20051114
  6. DEXAMETHASONE [Suspect]
     Indication: ACUTE LYMPHOCYTIC LEUKAEMIA
     Dosage: 10 MG/M*2, DAY1-15)
     Route: 042
  7. ELDISINE [Suspect]
     Indication: ACUTE LYMPHOCYTIC LEUKAEMIA
     Dosage: 3 MG/M*2, DAY1, DAY8 + DAY15), INTRAVENOUS
     Route: 042
     Dates: start: 20051027, end: 20051114
  8. LANVIS  (TIOGUANINE) [Suspect]
     Indication: ACUTE LYMPHOCYTIC LEUKAEMIA
     Dosage: ORAL
     Route: 048
     Dates: start: 20051129, end: 20051206
  9. BACTRIM [Concomitant]
  10. THIOGUANINE [Concomitant]

REACTIONS (12)
  - ASCITES [None]
  - BLEEDING TIME PROLONGED [None]
  - DIALYSIS [None]
  - DISSEMINATED INTRAVASCULAR COAGULATION [None]
  - HEPATIC FAILURE [None]
  - HISTIOCYTOSIS HAEMATOPHAGIC [None]
  - HYPERTRIGLYCERIDAEMIA [None]
  - PANCYTOPENIA [None]
  - PLEURAL EFFUSION [None]
  - PYREXIA [None]
  - RENAL FAILURE ACUTE [None]
  - VENOOCCLUSIVE LIVER DISEASE [None]
